FAERS Safety Report 15956330 (Version 2)
Quarter: 2019Q1

REPORT INFORMATION
  Report Type: Spontaneous
  Country: TW (occurrence: TW)
  Receive Date: 20190213
  Receipt Date: 20190213
  Transmission Date: 20190417
  Serious: Yes (Death, Other)
  Sender: FDA-Public Use
  Company Number: TW-PFIZER INC-2019064740

PATIENT
  Age: 50 Year
  Sex: Female

DRUGS (5)
  1. SALAZINE [Concomitant]
     Active Substance: SULFASALAZINE
     Dosage: 1 G, DAILY
  2. ARHEUMA [Concomitant]
     Dosage: 20 MG, DAILY
  3. XELJANZ [Suspect]
     Active Substance: TOFACITINIB CITRATE
     Indication: RHEUMATOID ARTHRITIS
     Dosage: 3 DF, Q2D
     Route: 048
     Dates: start: 20180903
  4. GENIQUIN [Concomitant]
     Dosage: 400 MG, DAILY
  5. XELJANZ [Suspect]
     Active Substance: TOFACITINIB CITRATE
     Dosage: 1 DF, QD
     Route: 048
     Dates: start: 20190203

REACTIONS (3)
  - Asthma [Unknown]
  - Influenza [Fatal]
  - Melaena [Unknown]

NARRATIVE: CASE EVENT DATE: 20190205
